FAERS Safety Report 16121605 (Version 1)
Quarter: 2019Q1

REPORT INFORMATION
  Report Type: Report from Study
  Country: None (occurrence: BR)
  Receive Date: 20190327
  Receipt Date: 20190327
  Transmission Date: 20190418
  Serious: Yes (Other)
  Sender: FDA-Public Use
  Company Number: BR-ABBVIE-19K-020-2715145-00

PATIENT
  Sex: Female
  Weight: 62 kg

DRUGS (2)
  1. OXOTRON [Concomitant]
     Indication: RHEUMATOID ARTHRITIS
  2. HUMIRA [Suspect]
     Active Substance: ADALIMUMAB
     Indication: RHEUMATOID ARTHRITIS
     Route: 058
     Dates: start: 20130101

REACTIONS (8)
  - Osteoarthritis [Unknown]
  - Bone pain [Unknown]
  - Spinal pain [Recovering/Resolving]
  - Musculoskeletal stiffness [Recovering/Resolving]
  - Dizziness [Recovered/Resolved]
  - Tooth fracture [Recovered/Resolved]
  - Tooth socket haemorrhage [Recovered/Resolved]
  - Procedural pain [Not Recovered/Not Resolved]

NARRATIVE: CASE EVENT DATE: 201901
